FAERS Safety Report 9648852 (Version 3)
Quarter: 2013Q4

REPORT INFORMATION
  Report Type: Report from Study
  Country: JP (occurrence: JP)
  Receive Date: 20131028
  Receipt Date: 20131115
  Transmission Date: 20140711
  Serious: Yes (Death)
  Sender: FDA-Public Use
  Company Number: JP-SA-2013SA108790

PATIENT
  Age: 78 Year
  Sex: Male

DRUGS (2)
  1. TAXOTERE [Suspect]
     Indication: PROSTATE CANCER
     Dosage: 70 TO 75 MG/M2 WITH 3 TO 4 WEEK INTERVAL
     Route: 042
     Dates: start: 20100301, end: 20100329
  2. PREDONINE [Concomitant]
     Route: 048

REACTIONS (1)
  - Acute respiratory distress syndrome [Fatal]
